FAERS Safety Report 11381353 (Version 4)
Quarter: 2015Q4

REPORT INFORMATION
  Report Type: Report from Study
  Country: GB (occurrence: GB)
  Receive Date: 20150814
  Receipt Date: 20151120
  Transmission Date: 20160304
  Serious: Yes (Hospitalization)
  Sender: FDA-Public Use
  Company Number: GB-ROCHE-1617467

PATIENT
  Age: 40 Year
  Sex: Female
  Weight: 59.7 kg

DRUGS (16)
  1. FLUOROURACIL. [Suspect]
     Active Substance: FLUOROURACIL
     Indication: COLORECTAL CANCER
     Dosage: LAST DOSE PRIOR TO SAE WAS TAKEN ON 23JUL/2015. DATE OF LAST DOSE PRIOR TO SECOND EPISODE OF SAE WAS
     Route: 040
     Dates: start: 20150626
  2. DOMPERIDON [Concomitant]
     Active Substance: DOMPERIDONE
     Route: 065
  3. NAPROXEN. [Concomitant]
     Active Substance: NAPROXEN
  4. DEXAMETHASON [Concomitant]
     Active Substance: DEXAMETHASONE
     Route: 065
     Dates: start: 20150627
  5. IBUPROFEN. [Concomitant]
     Active Substance: IBUPROFEN
     Route: 065
  6. ONDANSETRON [Concomitant]
     Active Substance: ONDANSETRON
     Route: 065
     Dates: start: 20150626
  7. ONDANSETRON [Concomitant]
     Active Substance: ONDANSETRON
     Route: 065
     Dates: start: 20150627
  8. OXALIPLATIN. [Suspect]
     Active Substance: OXALIPLATIN
     Indication: COLORECTAL CANCER
     Dosage: DATE OF LAST DOSE PRIOR TO SAE WAS TAKEN ON 23/JUL/2015 DATE OF LAST DOSE PRIOR TO SECOND EPISODE OF
     Route: 042
     Dates: start: 20150626
  9. FLUOROURACIL. [Suspect]
     Active Substance: FLUOROURACIL
     Dosage: LAST DOSE PRIOR TO SAE WAS TAKEN ON 27/JUL/2015
     Route: 050
     Dates: start: 20150626
  10. PARACETAMOL [Concomitant]
     Active Substance: ACETAMINOPHEN
     Route: 065
  11. LAXIDO [Concomitant]
     Active Substance: POLYETHYLENE GLYCOL 3350\POTASSIUM CHLORIDE\SODIUM BICARBONATE\SODIUM CHLORIDE
     Dosage: 1 SACHET AS NEEDED
     Route: 065
  12. DEXAMETHASON [Concomitant]
     Active Substance: DEXAMETHASONE
     Route: 065
     Dates: start: 20150626
  13. SALBUTAMOL [Concomitant]
     Active Substance: ALBUTEROL
     Dosage: UNK, PUFF AS NEEDED
     Route: 065
  14. BEVACIZUMAB [Suspect]
     Active Substance: BEVACIZUMAB
     Indication: COLORECTAL CANCER
     Dosage: DATE OF LAST DOSE PRIOR TO SAE WAS TAKEN ON 23/JUL/2015. DATE OF LAST DOSE PRIOR TO SECOND EPISODE O
     Route: 042
     Dates: start: 20150626
  15. FOLINIC ACID [Suspect]
     Active Substance: LEUCOVORIN
     Indication: COLORECTAL CANCER
     Dosage: DATE OF MOST RECENT DOSE, PRIOR TO SAE WAS TAKEN ON 23/JUL/2015. DATE OF LAST DOSE PRIOR TO SECOND E
     Route: 042
     Dates: start: 20150626
  16. CODEINE [Concomitant]
     Active Substance: CODEINE
     Route: 065

REACTIONS (1)
  - Pericardial effusion [Not Recovered/Not Resolved]

NARRATIVE: CASE EVENT DATE: 20150727
